FAERS Safety Report 20532995 (Version 1)
Quarter: 2022Q1

REPORT INFORMATION
  Report Type: Spontaneous
  Country: ES (occurrence: ES)
  Receive Date: 20220301
  Receipt Date: 20220301
  Transmission Date: 20220423
  Serious: Yes (Death, Hospitalization, Other)
  Sender: FDA-Public Use
  Company Number: ES-CELGENE-144-21880-13092043

PATIENT
  Age: 76 Year
  Sex: Male
  Weight: 70 kg

DRUGS (12)
  1. IXAZOMIB [Suspect]
     Active Substance: IXAZOMIB
     Indication: Plasma cell myeloma
     Dosage: 12 MILLIGRAM
     Route: 048
     Dates: start: 20130403, end: 20130911
  2. DEXAMETHASONE [Suspect]
     Active Substance: DEXAMETHASONE
     Indication: Plasma cell myeloma
     Dosage: 160 MILLIGRAM
     Route: 048
     Dates: start: 20130403, end: 20130911
  3. LENALIDOMIDE [Suspect]
     Active Substance: LENALIDOMIDE
     Indication: Plasma cell myeloma
     Dosage: 210 MILLIGRAM
     Route: 048
     Dates: start: 20130403, end: 20130911
  4. ASPIRIN [Concomitant]
     Active Substance: ASPIRIN
     Indication: Product used for unknown indication
     Dosage: 100 MILLIGRAM, QD
     Route: 048
     Dates: start: 20130403
  5. HUMAN RED BLOOD CELL [Concomitant]
     Active Substance: HUMAN RED BLOOD CELL
     Indication: Product used for unknown indication
     Dosage: UNK UNK, QD
     Route: 041
     Dates: start: 20130913
  6. HUMAN RED BLOOD CELL [Concomitant]
     Active Substance: HUMAN RED BLOOD CELL
     Dosage: UNK UNK, QD
     Route: 041
     Dates: start: 20130920
  7. CALCIUM GLUCONATE [Concomitant]
     Active Substance: CALCIUM GLUCONATE
     Indication: Product used for unknown indication
     Dosage: 1 GRAM
     Route: 041
     Dates: start: 20130913, end: 20131009
  8. ZOLEDRONIC ACID [Concomitant]
     Active Substance: ZOLEDRONIC ACID
     Indication: Product used for unknown indication
     Dosage: 4 MILLIGRAM, QD
     Route: 041
     Dates: start: 20130403
  9. NISTATIN [Concomitant]
     Active Substance: NYSTATIN
     Indication: Product used for unknown indication
     Dosage: UNK
     Route: 002
     Dates: start: 201304
  10. NISTATIN [Concomitant]
     Active Substance: NYSTATIN
     Dosage: UNK
     Route: 002
     Dates: start: 20130716
  11. ACYCLOVIR [Concomitant]
     Active Substance: ACYCLOVIR
     Indication: Product used for unknown indication
     Dosage: 800 MILLIGRAM, QD
     Route: 048
     Dates: start: 20130403
  12. ACETYLCYSTEINE [Concomitant]
     Active Substance: ACETYLCYSTEINE
     Indication: Product used for unknown indication
     Dosage: 1800 MILLIGRAM, QD
     Route: 048
     Dates: start: 20130403

REACTIONS (5)
  - Vascular encephalopathy [Fatal]
  - Atrial fibrillation [Fatal]
  - Pulmonary embolism [Fatal]
  - Cardio-respiratory arrest [Fatal]
  - Renal failure [Fatal]

NARRATIVE: CASE EVENT DATE: 20130911
